FAERS Safety Report 5582893-8 (Version None)
Quarter: 2008Q1

REPORT INFORMATION
  Report Type: 
  Country: None (occurrence: None)
  Receive Date: 20080107
  Receipt Date: 20071226
  Transmission Date: 20080703
  Serious: Yes (Death, Hospitalization)
  Sender: FDA-Public Use
  Company Number: FR-WYE-H01957808

PATIENT
  Sex: Female

DRUGS (6)
  1. CORDARONE [Suspect]
     Route: 048
     Dates: start: 20050101, end: 20070904
  2. NITRODERM [Concomitant]
     Route: 062
  3. TRIATEC [Suspect]
     Dosage: 2.5 MG (FREQUENCY UNSPECIFIED)
     Route: 048
  4. PREVISCAN [Suspect]
     Dosage: 20 MG (FREQUENCY UNSPECIFIED)
     Route: 048
     Dates: start: 20050101
  5. TAHOR [Suspect]
     Route: 048
  6. INEXIUM [Suspect]
     Route: 048

REACTIONS (3)
  - CARDIOPULMONARY FAILURE [None]
  - HYPOXIA [None]
  - INTERSTITIAL LUNG DISEASE [None]
